FAERS Safety Report 25658818 (Version 1)
Quarter: 2025Q3

REPORT INFORMATION
  Report Type: Spontaneous
  Country: US (occurrence: US)
  Receive Date: 20250808
  Receipt Date: 20250808
  Transmission Date: 20251020
  Serious: No
  Sender: ABBVIE
  Company Number: US-ABBVIE-6401102

PATIENT
  Sex: Male

DRUGS (1)
  1. SYNTHROID [Suspect]
     Active Substance: LEVOTHYROXINE SODIUM
     Indication: Thyroid disorder
     Dosage: FORM STRENGTH: 200 MICROGRAM
     Route: 048
     Dates: start: 1994

REACTIONS (4)
  - Blood glucose increased [Unknown]
  - Oropharyngeal discomfort [Unknown]
  - Product label confusion [Unknown]
  - Fatigue [Unknown]
